FAERS Safety Report 4696344-9 (Version None)
Quarter: 2005Q2

REPORT INFORMATION
  Report Type: 
  Country: None (occurrence: None)
  Receive Date: 20050620
  Receipt Date: 20050613
  Transmission Date: 20051028
  Serious: Yes (Death)
  Sender: FDA-Public Use
  Company Number: 2005-06-0914

PATIENT
  Age: 31 Year
  Sex: Female
  Weight: 79.3795 kg

DRUGS (10)
  1. PEG-INTRON [Suspect]
     Indication: HEPATITIS C
     Dates: start: 20050429
  2. RIBAVIRIN [Suspect]
     Indication: HEPATITIS C
     Dosage: ORAL
     Route: 048
     Dates: start: 20050429
  3. DICYCLOMINE HYDROCHLORIDE [Concomitant]
  4. INDERAL LA [Concomitant]
  5. LEXAPRO [Concomitant]
  6. LORAZEPAM [Concomitant]
  7. METAPROTERENOL SULFATE TABLETS [Concomitant]
  8. PREVACID CAPSULES [Concomitant]
  9. THIAMINE HYDROCHLORIDE TABLETS [Concomitant]
  10. UNSPECIFIED THERAPEUTIC AGENT TABLETS [Concomitant]

REACTIONS (5)
  - APNOEA [None]
  - FATIGUE [None]
  - ORAL DISCHARGE [None]
  - PULSE ABSENT [None]
  - RESUSCITATION [None]
